FAERS Safety Report 5509128-6 (Version None)
Quarter: 2007Q4

REPORT INFORMATION
  Report Type: 
  Country: None (occurrence: None)
  Receive Date: 20071107
  Receipt Date: 20071026
  Transmission Date: 20080405
  Serious: Yes (Death, Hospitalization, Other)
  Sender: FDA-Public Use
  Company Number: US-ELI_LILLY_AND_COMPANY-US200710003991

PATIENT
  Sex: Female
  Weight: 65.306 kg

DRUGS (15)
  1. CYMBALTA [Suspect]
     Indication: NEUROPATHY
     Dosage: 30 MG, 3/D
     Dates: start: 20070918
  2. DEXAMETHASONE [Concomitant]
     Dosage: 1 D/F, UNK
  3. METHADONE HCL [Concomitant]
     Dosage: 25 MG, 2/D
  4. METHADONE HCL [Concomitant]
     Dosage: 5 MG, AS NEEDED
  5. LYRICA [Concomitant]
     Dosage: 100 MG, 2/D
  6. VALIUM [Concomitant]
     Dosage: 5 MG, AS NEEDED
  7. VALIUM [Concomitant]
     Dosage: 10 MG, AS NEEDED
  8. LEVOTHYROXINE SODIUM [Concomitant]
     Dosage: 100 UG, DAILY (1/D)
  9. ALBUTEROL SULFATE [Concomitant]
     Dosage: 1 D/F, AS NEEDED
  10. GLYCOLAX [Concomitant]
     Dosage: 1 D/F, AS NEEDED
  11. PROMETHAZINE [Concomitant]
     Dosage: 25 MG, AS NEEDED
  12. MULTI-VITAMIN [Concomitant]
     Dosage: 1 D/F, UNK
  13. DILAUDID [Concomitant]
     Dosage: 16 MG, AS NEEDED
  14. DULCOLAX [Concomitant]
     Dosage: 10 MG, AS NEEDED
     Route: 054
  15. SCOPOLAMINE [Concomitant]
     Dosage: 1 D/F, UNK
     Route: 061

REACTIONS (5)
  - DEATH [None]
  - DYSPHAGIA [None]
  - DYSPNOEA [None]
  - PAIN [None]
  - PNEUMONIA [None]
